FAERS Safety Report 6268289-4 (Version None)
Quarter: 2009Q3

REPORT INFORMATION
  Report Type: 
  Country: None (occurrence: None)
  Receive Date: 20090713
  Receipt Date: 20090713
  Transmission Date: 20100115
  Serious: Yes (Death)
  Sender: FDA-Public Use
  Company Number: None

PATIENT
  Age: 74 Year
  Sex: Male
  Weight: 81.1939 kg

DRUGS (1)
  1. TAXOL [Suspect]
     Indication: BREAST CANCER METASTATIC
     Dosage: DOSE UNKNOWN IV DRIP
     Route: 041
     Dates: start: 20081008, end: 20090120

REACTIONS (7)
  - ATRIAL TACHYCARDIA [None]
  - PNEUMONITIS [None]
  - PNEUMOTHORAX [None]
  - PULMONARY HYPERTENSION [None]
  - RENAL FAILURE ACUTE [None]
  - RESPIRATORY FAILURE [None]
  - SHOCK HAEMORRHAGIC [None]
